FAERS Safety Report 22726950 (Version 2)
Quarter: 2023Q4

REPORT INFORMATION
  Report Type: Spontaneous
  Country: KR (occurrence: KR)
  Receive Date: 20230720
  Receipt Date: 20231019
  Transmission Date: 20240109
  Serious: Yes (Other)
  Sender: FDA-Public Use
  Company Number: KR-BRISTOL-MYERS SQUIBB COMPANY-2023-101304

PATIENT
  Age: 47 Year
  Sex: Male

DRUGS (2)
  1. NIVOLUMAB [Suspect]
     Active Substance: NIVOLUMAB
     Indication: Renal cell carcinoma
  2. CABOZANTINIB [Suspect]
     Active Substance: CABOZANTINIB
     Indication: Renal cell carcinoma

REACTIONS (8)
  - Hypercalcaemia of malignancy [Unknown]
  - Stauffer^s syndrome [Unknown]
  - Hyperthermia malignant [Unknown]
  - Weight decreased [Unknown]
  - Fatigue [Unknown]
  - Anaemia [Unknown]
  - Thrombocytosis [Unknown]
  - Hypercalcaemia [Unknown]
